FAERS Safety Report 8925168 (Version 1)
Quarter: 2012Q4

REPORT INFORMATION
  Report Type: 
  Country: JP (occurrence: JP)
  Receive Date: 20121126
  Receipt Date: 20121126
  Transmission Date: 20130627
  Serious: Yes (Hospitalization)
  Sender: FDA-Public Use
  Company Number: JP-B.I. PHARMACEUTICALS,INC./RIDGEFIELD-2012-BP-26788NB

PATIENT
  Age: 72 Year
  Sex: Male

DRUGS (6)
  1. PRAZAXA [Suspect]
     Indication: ATRIAL FIBRILLATION
     Dosage: 220 mg
     Route: 048
     Dates: start: 20120410, end: 20120521
  2. PARIET [Suspect]
     Indication: PROPHYLAXIS
     Dosage: 10 mg
     Route: 048
     Dates: start: 20120410, end: 20120528
  3. LANIRAPID [Concomitant]
     Indication: ARRHYTHMIA
     Dosage: 0.1 mg
     Route: 048
  4. PURSENNID [Concomitant]
     Indication: CONSTIPATION
     Dosage: 12 mg
     Route: 048
  5. URIEF [Concomitant]
     Indication: DYSURIA
     Dosage: 8 mg
     Route: 048
  6. KLARICID [Concomitant]
     Indication: BRONCHITIS
     Dosage: 200 mg
     Route: 048

REACTIONS (3)
  - Pancreatitis acute [Unknown]
  - Hepatic function abnormal [Recovered/Resolved]
  - Hepatic steatosis [Recovered/Resolved]
